FAERS Safety Report 18356089 (Version 1)
Quarter: 2020Q4

REPORT INFORMATION
  Report Type: Spontaneous
  Country: DE (occurrence: DE)
  Receive Date: 20201007
  Receipt Date: 20201007
  Transmission Date: 20210114
  Serious: Yes (Hospitalization)
  Sender: FDA-Public Use
  Company Number: DE-TEVA-2020-DE-1835741

PATIENT
  Age: 18 Year
  Sex: Male

DRUGS (6)
  1. DOXORUBICIN [Concomitant]
     Active Substance: DOXORUBICIN
     Indication: OSTEOSARCOMA
     Dosage: PART OF MAP REGIMEN
     Route: 065
  2. METHOTREXATE. [Suspect]
     Active Substance: METHOTREXATE
     Indication: OSTEOSARCOMA
     Dosage: HIGH-DOSE METHOTREXATE 12000MG/M2 BSA INFUSION IN WEEK 4 AND 5 OF EACH CYCLE (IN TOTAL 12 INFUSIO...
     Route: 050
  3. PIPERACILLIN/TAZOBACTAM [Interacting]
     Active Substance: PIPERACILLIN SODIUM\TAZOBACTAM SODIUM
     Indication: URINARY TRACT INFECTION
     Dosage: HE HAD RECEIVED FIVE DOSES OF PIPERACILLIN/TAZOBACTAM 4.5G IN PARALLEL TO THE METHOTREXATE COURSE...
     Route: 050
  4. PIPERACILLIN/TAZOBACTAM [Interacting]
     Active Substance: PIPERACILLIN SODIUM\TAZOBACTAM SODIUM
     Indication: PYREXIA
  5. CISPLATIN. [Concomitant]
     Active Substance: CISPLATIN
     Indication: OSTEOSARCOMA
     Dosage: PART OF MAP REGIMEN
     Route: 065
  6. METHOTREXATE. [Interacting]
     Active Substance: METHOTREXATE
     Indication: OSTEOSARCOMA
     Dosage: PART OF MAP REGIMEN
     Route: 065

REACTIONS (4)
  - Myelopathy [Recovered/Resolved]
  - Renal failure [Recovered/Resolved]
  - Drug interaction [Recovered/Resolved]
  - Neurotoxicity [Recovered/Resolved]
